FAERS Safety Report 7150543-5 (Version None)
Quarter: 2010Q4

REPORT INFORMATION
  Report Type: 
  Country: None (occurrence: None)
  Receive Date: 20101210
  Receipt Date: 20101203
  Transmission Date: 20110411
  Serious: Yes (Hospitalization)
  Sender: FDA-Public Use
  Company Number: FR-SANOFI-AVENTIS-2010SA073212

PATIENT
  Age: 40 Year
  Sex: Female

DRUGS (6)
  1. TAXOTERE [Suspect]
     Dates: start: 20100826, end: 20100826
  2. TAXOTERE [Suspect]
     Dates: start: 20100915, end: 20100915
  3. TRASTUZUMAB [Suspect]
     Dates: start: 20100825, end: 20100825
  4. TRASTUZUMAB [Suspect]
     Dates: start: 20100901, end: 20100901
  5. TRASTUZUMAB [Suspect]
     Dates: start: 20101014, end: 20101014
  6. TAXOL [Suspect]
     Dates: start: 20101007, end: 20101014

REACTIONS (1)
  - HEPATIC FIBROSIS [None]
